FAERS Safety Report 10721895 (Version 2)
Quarter: 2015Q1

REPORT INFORMATION
  Report Type: Report from Study
  Country: KR (occurrence: KR)
  Receive Date: 20150119
  Receipt Date: 20150127
  Transmission Date: 20150721
  Serious: Yes (Death)
  Sender: FDA-Public Use
  Company Number: KR-ABBVIE-10P-090-0660187-00

PATIENT
  Sex: Male
  Weight: 52 kg

DRUGS (17)
  1. SOLONDO [Concomitant]
     Active Substance: PREDNISOLONE
     Indication: PNEUMOCYSTIS JIROVECII PNEUMONIA
     Route: 048
     Dates: start: 20100612, end: 20100615
  2. SOLONDO [Concomitant]
     Active Substance: PREDNISOLONE
     Route: 048
     Dates: start: 20100703, end: 20100704
  3. STILNOX CR [Concomitant]
     Active Substance: ZOLPIDEM TARTRATE
     Indication: INSOMNIA
     Route: 048
     Dates: start: 20100615, end: 20100622
  4. SEPTRIN [Concomitant]
     Active Substance: SULFAMETHOXAZOLE\TRIMETHOPRIM
     Route: 048
     Dates: start: 20100701, end: 20100702
  5. SEPTRIN [Concomitant]
     Active Substance: SULFAMETHOXAZOLE\TRIMETHOPRIM
     Route: 048
     Dates: start: 20100703, end: 20100717
  6. SOLONDO [Concomitant]
     Active Substance: PREDNISOLONE
     Route: 048
     Dates: start: 20100701, end: 20100702
  7. SOLONDO [Concomitant]
     Active Substance: PREDNISOLONE
     Route: 048
     Dates: start: 20100705, end: 20100707
  8. CURAN [Concomitant]
     Indication: ANTACID THERAPY
     Route: 042
     Dates: start: 20100613, end: 20100613
  9. CURAN [Concomitant]
     Indication: ANTACID THERAPY
     Route: 048
     Dates: start: 20100614, end: 20100702
  10. 3TC/AZT [Concomitant]
     Indication: ANTIRETROVIRAL THERAPY
     Dates: start: 20100617, end: 20100706
  11. SOLONDO [Concomitant]
     Active Substance: PREDNISOLONE
     Route: 048
     Dates: start: 20100708, end: 20100717
  12. CURAN [Concomitant]
     Route: 048
     Dates: start: 20100704, end: 20100708
  13. SOLONDO [Concomitant]
     Active Substance: PREDNISOLONE
     Route: 048
     Dates: start: 20100616, end: 20100620
  14. CURAN [Concomitant]
     Route: 042
     Dates: start: 20100709, end: 20100717
  15. KALETRA [Suspect]
     Active Substance: LOPINAVIR\RITONAVIR
     Indication: HIV INFECTION
     Route: 065
     Dates: start: 20100617, end: 20100706
  16. SOLONDO [Concomitant]
     Active Substance: PREDNISOLONE
     Route: 048
     Dates: start: 20100621, end: 20100630
  17. SEPTRIN [Concomitant]
     Active Substance: SULFAMETHOXAZOLE\TRIMETHOPRIM
     Indication: PNEUMOCYSTIS JIROVECII PNEUMONIA
     Route: 048
     Dates: start: 20100612, end: 20100630

REACTIONS (11)
  - Nausea [Recovered/Resolved]
  - Pneumonia cytomegaloviral [Fatal]
  - Pancytopenia [Fatal]
  - Acquired immunodeficiency syndrome [Fatal]
  - Tachycardia [Fatal]
  - Ischaemic cardiomyopathy [Fatal]
  - Bundle branch block [Fatal]
  - Pneumocystis jirovecii pneumonia [Fatal]
  - Acute respiratory distress syndrome [Fatal]
  - Liver disorder [Fatal]
  - Inappropriate antidiuretic hormone secretion [Recovered/Resolved]

NARRATIVE: CASE EVENT DATE: 20100618
